FAERS Safety Report 8062748-X (Version None)
Quarter: 2012Q1

REPORT INFORMATION
  Report Type: 
  Country: None (occurrence: None)
  Receive Date: 20120118
  Receipt Date: 20120104
  Transmission Date: 20120608
  Serious: Yes (Life-Threatening, Hospitalization, Other)
  Sender: FDA-Public Use
  Company Number: 2012MA000254

PATIENT
  Sex: Male
  Weight: 134 kg

DRUGS (28)
  1. COUMADIN [Concomitant]
  2. POTASSIUM CHLORIDE [Concomitant]
  3. COLESTIPOLE [Concomitant]
  4. SKELAXIN [Concomitant]
  5. WARFARIN SODIUM [Concomitant]
  6. FLAX SEED OIL [Concomitant]
  7. OXYCODONE HCL [Concomitant]
  8. ANDROGEL [Concomitant]
  9. ASPIRIN [Concomitant]
  10. ATENOLOL [Concomitant]
  11. DIGOXIN [Suspect]
     Dosage: 250 MCG;PO
     Route: 048
     Dates: start: 20060101, end: 20080401
  12. TRAZODONE HCL [Concomitant]
  13. TRICOR [Concomitant]
  14. BUSPAR [Concomitant]
  15. CRESTOR [Concomitant]
  16. KLOR-CON [Concomitant]
  17. PROTONIX [Concomitant]
  18. VASOTEC [Concomitant]
  19. LASIX [Concomitant]
  20. AMBIEN [Concomitant]
  21. AMIODARONE HCL [Concomitant]
  22. TORADOL [Concomitant]
  23. ENALAPRIL [Concomitant]
  24. FISH OIL [Concomitant]
  25. MULTI-VITAMIN [Concomitant]
  26. HEPARIN [Concomitant]
  27. PROPAFENONE HYDROCHLORIDE [Concomitant]
  28. VICODIN [Concomitant]

REACTIONS (18)
  - MUSCULOSKELETAL PAIN [None]
  - DYSPNOEA [None]
  - HYPERLIPIDAEMIA [None]
  - HYPOGONADISM [None]
  - LEFT VENTRICULAR HYPERTROPHY [None]
  - CARDIOVERSION [None]
  - PAIN IN EXTREMITY [None]
  - SICK SINUS SYNDROME [None]
  - HEART RATE IRREGULAR [None]
  - CHEST PAIN [None]
  - OSTEOARTHRITIS [None]
  - CONDITION AGGRAVATED [None]
  - CHEST DISCOMFORT [None]
  - ATRIAL FIBRILLATION [None]
  - HYPERTENSION [None]
  - ELECTROCARDIOGRAM ST-T SEGMENT ABNORMAL [None]
  - ASTHENIA [None]
  - PALPITATIONS [None]
